FAERS Safety Report 7170723-2 (Version None)
Quarter: 2010Q4

REPORT INFORMATION
  Report Type: 
  Country: None (occurrence: None)
  Receive Date: 20101214
  Receipt Date: 20101214
  Transmission Date: 20110411
  Serious: Yes (Other)
  Sender: FDA-Public Use
  Company Number: None

PATIENT
  Age: 100 Year
  Sex: Female
  Weight: 39.8712 kg

DRUGS (1)
  1. MIRTAZAPINE [Suspect]
     Indication: DEPRESSION
     Dosage: 7.5 MG -1/2 OF 15MG  TABLET PO
     Route: 048
     Dates: start: 20101117, end: 20101121

REACTIONS (4)
  - AGITATION [None]
  - FALL [None]
  - MOVEMENT DISORDER [None]
  - RESTLESSNESS [None]
